FAERS Safety Report 12864760 (Version 2)
Quarter: 2016Q4

REPORT INFORMATION
  Report Type: Report from Study
  Country: CN (occurrence: CN)
  Receive Date: 20161020
  Receipt Date: 20161102
  Transmission Date: 20170207
  Serious: Yes (Hospitalization)
  Sender: FDA-Public Use
  Company Number: PHHY2016CN124856

PATIENT
  Age: 40 Year
  Sex: Male
  Weight: 52.5 kg

DRUGS (16)
  1. MYFORTIC [Suspect]
     Active Substance: MYCOPHENOLATE SODIUM
     Indication: RENAL TRANSPLANT
     Dosage: 540 MG, BID
     Route: 048
     Dates: start: 20160816, end: 20161010
  2. FU MEI XIN//FOSFOMYCIN SODIUM [Concomitant]
     Indication: PROPHYLAXIS AGAINST TRANSPLANT REJECTION
     Dosage: 3.5 MG, UNK
     Route: 065
     Dates: start: 20160823, end: 20160905
  3. FU MEI XIN//FOSFOMYCIN SODIUM [Concomitant]
     Dosage: 4 MG, UNK
     Route: 065
     Dates: start: 20160906, end: 20160909
  4. PREDNISONE. [Concomitant]
     Active Substance: PREDNISONE
     Dosage: 10 MG, UNK
     Route: 065
     Dates: start: 20161025, end: 20161025
  5. MYFORTIC [Suspect]
     Active Substance: MYCOPHENOLATE SODIUM
     Indication: KIDNEY TRANSPLANT REJECTION
     Dosage: 900 MG, (0.54 G QD, 0.36 G, QN)
     Route: 048
     Dates: start: 20161011, end: 20161011
  6. MYFORTIC [Suspect]
     Active Substance: MYCOPHENOLATE SODIUM
     Dosage: 720 MG, QD
     Route: 048
     Dates: start: 20161012
  7. FU MEI XIN//FOSFOMYCIN SODIUM [Concomitant]
     Dosage: 3.5 MG, UNK
     Route: 065
     Dates: start: 20160910, end: 20160920
  8. FU MEI XIN//FOSFOMYCIN SODIUM [Concomitant]
     Dosage: 2 MG, UNK
     Route: 065
     Dates: start: 20161018, end: 20161018
  9. FU MEI XIN//FOSFOMYCIN SODIUM [Concomitant]
     Dosage: 1.5 MG, UNK
     Route: 065
     Dates: start: 20161019, end: 20161024
  10. PREDNISONE. [Concomitant]
     Active Substance: PREDNISONE
     Indication: PROPHYLAXIS AGAINST TRANSPLANT REJECTION
     Dosage: 15 MG, QD
     Route: 065
     Dates: start: 20160809, end: 20161024
  11. FU MEI XIN//FOSFOMYCIN SODIUM [Concomitant]
     Dosage: 4 MG, UNK
     Route: 065
     Dates: start: 20161025
  12. FU MEI XIN//FOSFOMYCIN SODIUM [Concomitant]
     Dosage: 3 MG, UNK
     Route: 065
     Dates: start: 20161012, end: 20161017
  13. FU MEI XIN//FOSFOMYCIN SODIUM [Concomitant]
     Dosage: 2 MG, BID
     Route: 065
     Dates: start: 20160921, end: 20161010
  14. FU MEI XIN//FOSFOMYCIN SODIUM [Concomitant]
     Dosage: 2 MG, QD
     Route: 065
     Dates: start: 20161011, end: 20161011
  15. PREDNISONE. [Concomitant]
     Active Substance: PREDNISONE
     Dosage: 7.5 MG, UNK
     Route: 065
     Dates: start: 20161026
  16. MONTMORILLONITE [Concomitant]
     Active Substance: MONTMORILLONITE
     Indication: PRODUCT USED FOR UNKNOWN INDICATION
     Dosage: 3 G, TID
     Route: 065
     Dates: start: 20161011, end: 20161012

REACTIONS (6)
  - Procalcitonin increased [Unknown]
  - Ureteric obstruction [Recovering/Resolving]
  - Pyrexia [Recovered/Resolved]
  - Urinary tract infection [Recovered/Resolved]
  - Diarrhoea [Recovering/Resolving]
  - Blood creatinine increased [Not Recovered/Not Resolved]

NARRATIVE: CASE EVENT DATE: 20160829
